FAERS Safety Report 13676134 (Version 5)
Quarter: 2018Q1

REPORT INFORMATION
  Report Type: Report from Study
  Country: CA (occurrence: CA)
  Receive Date: 20170622
  Receipt Date: 20180326
  Transmission Date: 20180508
  Serious: Yes (Hospitalization)
  Sender: FDA-Public Use
  Company Number: CA-BRISTOL-MYERS SQUIBB COMPANY-BMS-2017-018671

PATIENT
  Age: 19 Year
  Sex: Female

DRUGS (1)
  1. ABATACEPT [Suspect]
     Active Substance: ABATACEPT
     Indication: JUVENILE IDIOPATHIC ARTHRITIS
     Dosage: 750 MG, Q4WK
     Route: 042
     Dates: start: 20131212

REACTIONS (9)
  - Fatigue [Not Recovered/Not Resolved]
  - Pharyngitis [Unknown]
  - Pain [Unknown]
  - Vomiting [Unknown]
  - Nasal obstruction [Not Recovered/Not Resolved]
  - Pyrexia [Unknown]
  - Pain in extremity [Unknown]
  - Diarrhoea [Unknown]
  - Nasal congestion [Recovering/Resolving]

NARRATIVE: CASE EVENT DATE: 20170225
